FAERS Safety Report 12482836 (Version 3)
Quarter: 2017Q1

REPORT INFORMATION
  Report Type: Report from Study
  Country: None (occurrence: BR)
  Receive Date: 20160620
  Receipt Date: 20170118
  Transmission Date: 20170428
  Serious: Yes (Other)
  Sender: FDA-Public Use
  Company Number: BR-ABBVIE-16P-020-1655908-00

PATIENT
  Age: 66 Year
  Sex: Female
  Weight: 48 kg

DRUGS (5)
  1. SYNTHROID [Suspect]
     Active Substance: LEVOTHYROXINE SODIUM
     Indication: HYPOTHYROIDISM
     Dosage: 50 MCG (FASTING, 30 MINUTES BEFORE BREAKFAST)
     Route: 048
  2. SYNTHROID [Suspect]
     Active Substance: LEVOTHYROXINE SODIUM
     Dosage: 75 MCG (FASTING, 30 MINUTES BEFORE BREAKFAST)
     Route: 048
  3. PROPRANOLOL [Concomitant]
     Active Substance: PROPRANOLOL HYDROCHLORIDE
     Indication: HYPERTENSION
     Dosage: 2 TABLET (MORNING/NIGHT)
     Route: 048
  4. SINVALIP [Concomitant]
     Indication: BLOOD CHOLESTEROL ABNORMAL
     Dosage: 40 MG (AT NIGHT)
     Route: 048
  5. SYNTHROID [Suspect]
     Active Substance: LEVOTHYROXINE SODIUM
     Dosage: 25 MCG (FASTING, 30 MINUTES BEFORE BREAKFAST)
     Route: 048

REACTIONS (5)
  - Foot fracture [Recovering/Resolving]
  - Breast cancer [Recovered/Resolved]
  - Anaemia [Recovered/Resolved]
  - Ligament sprain [Recovering/Resolving]
  - Laboratory test abnormal [Unknown]

NARRATIVE: CASE EVENT DATE: 201512
